FAERS Safety Report 4678936-6 (Version None)
Quarter: 2005Q2

REPORT INFORMATION
  Report Type: 
  Country: None (occurrence: None)
  Receive Date: 20050531
  Receipt Date: 20050518
  Transmission Date: 20051028
  Serious: Yes (Other)
  Sender: FDA-Public Use
  Company Number: 2005076669

PATIENT
  Sex: Female
  Weight: 88.905 kg

DRUGS (13)
  1. CELEBREX [Suspect]
     Indication: OSTEOARTHRITIS
     Dosage: 200 MG (200 MG, 1 IN 1 D), ORAL
     Route: 048
  2. PLAVIX [Concomitant]
  3. MIAACALCIN (CALCITONIN, SALMON) [Concomitant]
  4. ACTONEL [Concomitant]
  5. LASIX [Concomitant]
  6. NEPHROCAPS (FOLIC ACID, VITAMINS NOS) [Concomitant]
  7. LEXAPRO [Concomitant]
  8. ZOCOR [Concomitant]
  9. ARVOCET-N (DEXTROPROPOXYPHENE NAPSILATE, PARACETAMOL) [Concomitant]
  10. CARISOPRODOL [Concomitant]
  11. AMITRIPTYLINE HCL [Concomitant]
  12. HYDROXYZINE [Concomitant]
  13. AMBIEN [Concomitant]

REACTIONS (5)
  - ARTHRALGIA [None]
  - ARTHROPATHY [None]
  - CARTILAGE NEOPLASM [None]
  - DRUG DOSE OMISSION [None]
  - DRUG EFFECT DECREASED [None]
